FAERS Safety Report 15042051 (Version 1)
Quarter: 2018Q2

REPORT INFORMATION
  Report Type: Spontaneous
  Country: US (occurrence: US)
  Receive Date: 20180531
  Receipt Date: 20180531
  Transmission Date: 20180711
  Serious: No
  Sender: FDA-Public Use
  Company Number: None

PATIENT
  Age: 78 Year
  Sex: Female

DRUGS (1)
  1. ENBREL [Suspect]
     Active Substance: ETANERCEPT
     Dates: start: 20180501, end: 20180531

REACTIONS (2)
  - Drug ineffective [None]
  - Musculoskeletal stiffness [None]

NARRATIVE: CASE EVENT DATE: 20180501
